FAERS Safety Report 10171123 (Version 1)
Quarter: 2014Q2

REPORT INFORMATION
  Report Type: Spontaneous
  Country: US (occurrence: None)
  Receive Date: 20140428
  Receipt Date: 20140428
  Transmission Date: 20141212
  Serious: No
  Sender: FDA-Public Use
  Company Number: PHEH2014US001234

PATIENT
  Age: 40 Year
  Sex: Female

DRUGS (6)
  1. GILENYA [Suspect]
     Route: 048
  2. AMPYRA (FAMPRIDINE) [Concomitant]
  3. AMANTADINE [Concomitant]
  4. DICLOFEN   /07578701/ (DICLOFENAC SODIUM, MENTHOL) [Concomitant]
  5. LOESTRIN (ETHINYLESTRADIOL, NORETHISTERONE ACETATE) [Concomitant]
  6. VITAMIN D (ERGOCALCIFEROL) [Concomitant]

REACTIONS (3)
  - Fatigue [None]
  - Headache [None]
  - Back pain [None]
